FAERS Safety Report 8578429-X (Version None)
Quarter: 2012Q3

REPORT INFORMATION
  Report Type: 
  Country: None (occurrence: None)
  Receive Date: 20120808
  Receipt Date: 20120725
  Transmission Date: 20120928
  Serious: Yes (Hospitalization, Disabling, Other)
  Sender: FDA-Public Use
  Company Number: GB-RANBAXY-2012R1-58588

PATIENT
  Age: 15 Year
  Sex: Female
  Weight: 89 kg

DRUGS (4)
  1. ACETAMINOPHEN [Concomitant]
     Indication: PRODUCT USED FOR UNKNOWN INDICATION
     Dosage: UNK
     Route: 065
  2. ACETAMINOPHEN AND CODEINE PHOSPHATE [Concomitant]
     Indication: PRODUCT USED FOR UNKNOWN INDICATION
     Dosage: UNK
     Route: 065
  3. MINOCYCLINE HCL [Suspect]
     Indication: ACNE
     Dosage: 1 DF, QD
     Route: 048
     Dates: start: 20120531, end: 20120713
  4. IBUPROFEN [Concomitant]
     Indication: PRODUCT USED FOR UNKNOWN INDICATION
     Dosage: UNK
     Route: 065

REACTIONS (8)
  - BENIGN INTRACRANIAL HYPERTENSION [None]
  - RETINAL HAEMORRHAGE [None]
  - VOMITING [None]
  - VITH NERVE PARALYSIS [None]
  - VISION BLURRED [None]
  - DIZZINESS [None]
  - PAPILLOEDEMA [None]
  - HEADACHE [None]
